FAERS Safety Report 17284770 (Version 4)
Quarter: 2022Q1

REPORT INFORMATION
  Report Type: Report from Study
  Country: US (occurrence: US)
  Receive Date: 20200117
  Receipt Date: 20220303
  Transmission Date: 20220423
  Serious: Yes (Other)
  Sender: FDA-Public Use
  Company Number: US-TEVA-2020-US-1168386

PATIENT
  Age: 42 Year
  Sex: Female

DRUGS (2)
  1. COPAXONE [Suspect]
     Active Substance: GLATIRAMER ACETATE
     Indication: Multiple sclerosis
     Dosage: FORM STRENGTH: UNKNOWN
     Route: 058
     Dates: start: 20140101, end: 20200106
  2. COPAXONE [Suspect]
     Active Substance: GLATIRAMER ACETATE
     Route: 065
     Dates: start: 20200301

REACTIONS (16)
  - Anaphylactic shock [Recovered/Resolved]
  - Throat tightness [Recovered/Resolved]
  - Hypersensitivity [Recovered/Resolved]
  - Dyspnoea [Recovered/Resolved]
  - Palpitations [Recovered/Resolved]
  - Dizziness [Recovered/Resolved]
  - Chills [Recovered/Resolved]
  - Hot flush [Recovered/Resolved]
  - Influenza like illness [Recovering/Resolving]
  - Device delivery system issue [Unknown]
  - Injection site pain [Unknown]
  - Product quality issue [Unknown]
  - Feeling abnormal [Recovering/Resolving]
  - Heart rate increased [Recovered/Resolved]
  - Chest discomfort [Recovered/Resolved]
  - Flushing [Recovered/Resolved]

NARRATIVE: CASE EVENT DATE: 20200106
